FAERS Safety Report 6743248-3 (Version None)
Quarter: 2010Q2

REPORT INFORMATION
  Report Type: 
  Country: None (occurrence: None)
  Receive Date: 20100527
  Receipt Date: 20100519
  Transmission Date: 20101027
  Serious: Yes (Hospitalization)
  Sender: FDA-Public Use
  Company Number: CA-ASTRAZENECA-2010SE23158

PATIENT
  Age: 70 Year
  Sex: Male

DRUGS (6)
  1. SYMBICORT [Suspect]
     Indication: CHRONIC OBSTRUCTIVE PULMONARY DISEASE
     Dosage: TWO PUFFS TWO TIMES A DAY
     Route: 055
  2. PULMICORT [Suspect]
     Route: 055
  3. LIPITOR [Concomitant]
  4. SPIRIVA [Concomitant]
  5. ATROVENT [Concomitant]
  6. VENTOLIN [Concomitant]

REACTIONS (4)
  - CATARACT OPERATION [None]
  - DRY EYE [None]
  - EYE PAIN [None]
  - VISION BLURRED [None]
